FAERS Safety Report 12099611 (Version 1)
Quarter: 2016Q1

REPORT INFORMATION
  Report Type: Spontaneous
  Country: US (occurrence: None)
  Receive Date: 20160219
  Receipt Date: 20160219
  Transmission Date: 20160526
  Serious: Yes (Life-Threatening, Hospitalization, Disabling)
  Sender: FDA-Public Use
  Company Number: None

PATIENT
  Age: 79 Year
  Sex: Male
  Weight: 97.52 kg

DRUGS (5)
  1. COZAAR [Concomitant]
     Active Substance: LOSARTAN POTASSIUM
  2. FLEXERIL [Suspect]
     Active Substance: CYCLOBENZAPRINE HYDROCHLORIDE
     Indication: BACK PAIN
     Dosage: 1 TABL FOUR TIMES DAILY TAKEN BY MOUTH
     Route: 048
     Dates: start: 20151222, end: 20151226
  3. CLOPIDOGREL [Concomitant]
     Active Substance: CLOPIDOGREL BISULFATE
  4. NITROGLYCERIN. [Concomitant]
     Active Substance: NITROGLYCERIN
  5. ISOSORBIDE MONITRATE [Concomitant]

REACTIONS (5)
  - Ataxia [None]
  - Vision blurred [None]
  - Arrhythmia [None]
  - Tachycardia [None]
  - Mobility decreased [None]

NARRATIVE: CASE EVENT DATE: 20151229
